FAERS Safety Report 7898361-4 (Version None)
Quarter: 2011Q4

REPORT INFORMATION
  Report Type: 
  Country: None (occurrence: None)
  Receive Date: 20111107
  Receipt Date: 20111031
  Transmission Date: 20120403
  Serious: Yes (Other)
  Sender: FDA-Public Use
  Company Number: BR-PFIZER INC-2011266950

PATIENT
  Age: 31 Year
  Sex: Female
  Weight: 56 kg

DRUGS (1)
  1. DEPO-PROVERA [Suspect]
     Indication: ENDOMETRIOSIS
     Dosage: 150 MG, EVERY 3 MONTHS
     Route: 030
     Dates: start: 20010101, end: 20101201

REACTIONS (5)
  - GALLBLADDER OPERATION [None]
  - AMENORRHOEA [None]
  - PAIN IN EXTREMITY [None]
  - ACNE [None]
  - OBESITY SURGERY [None]
